FAERS Safety Report 5517926-8 (Version None)
Quarter: 2007Q4

REPORT INFORMATION
  Report Type: 
  Country: None (occurrence: None)
  Receive Date: 20071107
  Receipt Date: 20070717
  Transmission Date: 20080405
  Serious: Yes (Hospitalization)
  Sender: FDA-Public Use
  Company Number: WAES 0707USA03495

PATIENT
  Age: 52 Year
  Sex: Female

DRUGS (5)
  1. MEVACOR [Suspect]
     Indication: BLOOD CHOLESTEROL INCREASED
     Dosage: 20-40 MG/DAILY/PO
     Route: 048
  2. CALAN [Concomitant]
  3. ISORDIL [Concomitant]
  4. MICRONASE [Concomitant]
  5. TAGAMET [Concomitant]

REACTIONS (1)
  - HEPATITIS [None]
